FAERS Safety Report 9708803 (Version 1)
Quarter: 2013Q4

REPORT INFORMATION
  Report Type: Report from Study
  Country: DK (occurrence: CH)
  Receive Date: 20131125
  Receipt Date: 20131125
  Transmission Date: 20140711
  Serious: Yes (Other)
  Sender: FDA-Public Use
  Company Number: CH-FRI-1000051733

PATIENT
  Age: 49 Year
  Sex: Female

DRUGS (2)
  1. ESCITALOPRAM [Suspect]
     Indication: DEPRESSION
     Dosage: 10 MG
     Route: 048
     Dates: start: 20121030
  2. TRITTICO [Concomitant]
     Indication: SLEEP DISORDER
     Dosage: 50 MG
     Route: 048
     Dates: start: 20121030

REACTIONS (2)
  - Hypoacusis [Recovered/Resolved]
  - Nasal obstruction [Recovered/Resolved]
